FAERS Safety Report 5196511-4 (Version None)
Quarter: 2006Q4

REPORT INFORMATION
  Report Type: 
  Country: None (occurrence: None)
  Receive Date: 20061227
  Receipt Date: 20061218
  Transmission Date: 20070319
  Serious: Yes (Other)
  Sender: FDA-Public Use
  Company Number: 230001E06ARG

PATIENT
  Age: 35 Year
  Sex: Female
  Weight: 60 kg

DRUGS (6)
  1. REBIF [Suspect]
     Indication: RELAPSING-REMITTING MULTIPLE SCLEROSIS
     Dosage: 44 MCG, 3 IN 1 WEEKS, SUBCUTANEOUS
     Route: 058
     Dates: start: 20041020, end: 20060308
  2. PAROXETINE HCL [Concomitant]
  3. BACLOFEN [Concomitant]
  4. CLONAZEPAM [Concomitant]
  5. PREDNISONE TAB [Concomitant]
  6. METHOTREXATE [Concomitant]

REACTIONS (5)
  - JOINT SWELLING [None]
  - OEDEMA PERIPHERAL [None]
  - PAIN IN EXTREMITY [None]
  - POLYARTHRITIS [None]
  - SYNOVITIS [None]
